FAERS Safety Report 23195190 (Version 1)
Quarter: 2023Q4

REPORT INFORMATION
  Report Type: Spontaneous
  Country: JP (occurrence: JP)
  Receive Date: 20231117
  Receipt Date: 20231117
  Transmission Date: 20240109
  Serious: Yes (Other)
  Sender: FDA-Public Use
  Company Number: JP-GSKNCCC-Case-01854064_AE-77313

PATIENT

DRUGS (1)
  1. SERETIDE [Suspect]
     Active Substance: FLUTICASONE PROPIONATE\SALMETEROL XINAFOATE
     Indication: Prophylaxis
     Dosage: UNK

REACTIONS (3)
  - Pneumonia [Unknown]
  - Throat irritation [Unknown]
  - Product use in unapproved indication [Unknown]
